FAERS Safety Report 5997617-X (Version None)
Quarter: 2008Q4

REPORT INFORMATION
  Report Type: 
  Country: None (occurrence: None)
  Receive Date: 20081212
  Receipt Date: 20081203
  Transmission Date: 20090506
  Serious: Yes (Other)
  Sender: FDA-Public Use
  Company Number: US-PFIZER INC-2008151462

PATIENT
  Sex: Female
  Weight: 96.145 kg

DRUGS (1)
  1. CELECOXIB [Suspect]
     Indication: OSTEOARTHRITIS

REACTIONS (1)
  - B-CELL LYMPHOMA [None]
